FAERS Safety Report 17829495 (Version 1)
Quarter: 2020Q2

REPORT INFORMATION
  Report Type: Spontaneous
  Country: US (occurrence: US)
  Receive Date: 20200527
  Receipt Date: 20200527
  Transmission Date: 20200714
  Serious: Yes (Hospitalization, Disabling)
  Sender: FDA-Public Use
  Company Number: None

PATIENT
  Age: 69 Year
  Sex: Male
  Weight: 169 kg

DRUGS (1)
  1. CANAGLIFLOZIN 100MG [Suspect]
     Active Substance: CANAGLIFLOZIN

REACTIONS (2)
  - Osteomyelitis [None]
  - Toe amputation [None]

NARRATIVE: CASE EVENT DATE: 20200525
